FAERS Safety Report 16956466 (Version 4)
Quarter: 2019Q4

REPORT INFORMATION
  Report Type: Spontaneous
  Country: EC (occurrence: EC)
  Receive Date: 20191024
  Receipt Date: 20191118
  Transmission Date: 20200122
  Serious: Yes (Hospitalization, Other)
  Sender: FDA-Public Use
  Company Number: EC-PFIZER INC-2019443648

PATIENT
  Age: 31 Year
  Sex: Female

DRUGS (3)
  1. CABERGOLINE. [Suspect]
     Active Substance: CABERGOLINE
     Indication: BLOOD PROLACTIN ABNORMAL
     Dosage: 0.5 DF, 2X/WEEK (MONDAY AND THURSDAY)
  2. DEPO-PROVERA [Suspect]
     Active Substance: MEDROXYPROGESTERONE ACETATE
     Indication: UTERINE HAEMORRHAGE
  3. DEPO-PROVERA [Suspect]
     Active Substance: MEDROXYPROGESTERONE ACETATE
     Indication: HAEMORRHAGE
     Dosage: 1 DF, EVERY 3 MONTHS
     Dates: start: 20190423

REACTIONS (9)
  - Nausea [Recovered/Resolved]
  - Abdominal pain upper [Recovered/Resolved]
  - Ovarian cyst torsion [Recovered/Resolved]
  - Breast pain [Recovered/Resolved]
  - Ovarian cyst [Recovered/Resolved]
  - Abdominal distension [Recovered/Resolved]
  - Abdominal pain lower [Recovered/Resolved]
  - Depressed mood [Recovered/Resolved]
  - Abdominal discomfort [Recovered/Resolved]

NARRATIVE: CASE EVENT DATE: 2019
